FAERS Safety Report 7656272-3 (Version None)
Quarter: 2011Q3

REPORT INFORMATION
  Report Type: 
  Country: None (occurrence: None)
  Receive Date: 20110729
  Receipt Date: 20110722
  Transmission Date: 20111222
  Serious: Yes (Other)
  Sender: FDA-Public Use
  Company Number: JPI-P-016020

PATIENT
  Age: 32 Year
  Sex: Female
  Weight: 151.955 kg

DRUGS (2)
  1. FLURAZEPAM [Concomitant]
  2. XYREM [Suspect]
     Indication: NARCOLEPSY
     Dosage: 2 IN 1 D, ORAL, 9 GM (4.5 GM, 2 IN 1 D), ORAL
     Route: 048
     Dates: start: 20041001

REACTIONS (3)
  - STAPHYLOCOCCAL INFECTION [None]
  - CONDITION AGGRAVATED [None]
  - NEPHROLITHIASIS [None]
